FAERS Safety Report 10066357 (Version 1)
Quarter: 2014Q2

REPORT INFORMATION
  Report Type: Spontaneous
  Country: US (occurrence: US)
  Receive Date: 20140408
  Receipt Date: 20140408
  Transmission Date: 20141212
  Serious: Yes (Other)
  Sender: FDA-Public Use
  Company Number: US-TEVA-473230USA

PATIENT
  Sex: Female

DRUGS (1)
  1. OXYBUTYNIN [Suspect]

REACTIONS (7)
  - Knee arthroplasty [Unknown]
  - Iris disorder [Unknown]
  - Dry eye [Unknown]
  - Eye inflammation [Unknown]
  - Lacrimation increased [Unknown]
  - Eye pruritus [Unknown]
  - Eye pain [Unknown]
